FAERS Safety Report 7355130-1 (Version None)
Quarter: 2011Q1

REPORT INFORMATION
  Report Type: 
  Country: None (occurrence: None)
  Receive Date: 20110307
  Receipt Date: 20100401
  Transmission Date: 20110831
  Serious: No
  Sender: FDA-Public Use
  Company Number: AEUSA201000102

PATIENT
  Age: 57 Year
  Sex: Female
  Weight: 142.8831 kg

DRUGS (19)
  1. NEXIUM /01479303/ [Concomitant]
  2. NABUMETONE [Concomitant]
  3. LISINOPRIL [Concomitant]
  4. ADVAIR DISKUS 100/50 [Concomitant]
  5. TEMAZEPAM [Concomitant]
  6. PROLASTIN-C [Suspect]
     Indication: ALPHA-1 ANTI-TRYPSIN DEFICIENCY
     Dosage: 7380 ;QW;IV
     Route: 042
     Dates: start: 20100330
  7. ZYRTEC [Concomitant]
  8. NASONEX [Concomitant]
  9. PLAVIX [Concomitant]
  10. COQ [Concomitant]
  11. LASIX [Concomitant]
  12. ALBUTEROL SULFATE [Concomitant]
  13. PROAIR HFA [Concomitant]
  14. MTRAPEX [Concomitant]
  15. GABAPENTIN [Concomitant]
  16. CARBIDOPA/LEV0D0PA [Concomitant]
  17. SYNTHROID [Concomitant]
  18. POTASSIUM CHLORIDE [Concomitant]
  19. ATROVENT [Concomitant]

REACTIONS (4)
  - COUGH [None]
  - INFLUENZA LIKE ILLNESS [None]
  - DYSPNOEA [None]
  - WHEEZING [None]
